FAERS Safety Report 13759336 (Version 2)
Quarter: 2017Q4

REPORT INFORMATION
  Report Type: Spontaneous
  Country: US (occurrence: US)
  Receive Date: 20170717
  Receipt Date: 20171103
  Transmission Date: 20180320
  Serious: Yes (Hospitalization, Other)
  Sender: FDA-Public Use
  Company Number: US-PFIZER INC-2017304845

PATIENT
  Age: 62 Year
  Sex: Female

DRUGS (3)
  1. METOPROLOL TARTRATE. [Suspect]
     Active Substance: METOPROLOL TARTRATE
     Indication: CHEST PAIN
     Dosage: 50 MG, 2X/DAY
     Dates: start: 2006
  2. METOPROLOL TARTRATE. [Suspect]
     Active Substance: METOPROLOL TARTRATE
     Indication: HYPERTENSION
  3. METOPROLOL TARTRATE. [Suspect]
     Active Substance: METOPROLOL TARTRATE
     Indication: CARDIAC DISORDER

REACTIONS (3)
  - Depression [Unknown]
  - Chest pain [Unknown]
  - Bipolar disorder [Unknown]

NARRATIVE: CASE EVENT DATE: 201706
